FAERS Safety Report 8611922-X (Version None)
Quarter: 2012Q3

REPORT INFORMATION
  Report Type: 
  Country: None (occurrence: None)
  Receive Date: 20120822
  Receipt Date: 20120814
  Transmission Date: 20120928
  Serious: Yes (Hospitalization, Other)
  Sender: FDA-Public Use
  Company Number: US-BAYER-2012-031150

PATIENT
  Age: 28 Year
  Sex: Female
  Weight: 88.435 kg

DRUGS (15)
  1. COMPAZINE [Concomitant]
     Dosage: UNK UNK, PRN
     Dates: start: 20110726, end: 20111227
  2. M.V.I. [Concomitant]
     Dosage: 2/AM
  3. YAZ [Suspect]
  4. NEXIUM [Concomitant]
     Dosage: 40 MG, BID
     Dates: start: 20111006, end: 20111227
  5. MIRALAX [Concomitant]
     Dosage: 1/AM, UNK
     Dates: start: 20111006, end: 20111227
  6. YASMIN [Suspect]
     Dosage: UNK
     Dates: start: 20051201, end: 20080301
  7. REGLAN [Concomitant]
     Dosage: 10 MG/AC, UNK
     Dates: start: 20111006
  8. ZYRTEC [Concomitant]
     Dosage: 10 MG, PRN
  9. APAP W/ CODEINE [Concomitant]
  10. FLONASE [Concomitant]
     Dosage: 1 SPRAY EACH NARE PRN
  11. YAZ [Suspect]
     Indication: PREMENSTRUAL SYNDROME
     Dosage: UNK
     Dates: start: 20080601, end: 20081001
  12. YASMIN [Suspect]
     Indication: PREMENSTRUAL SYNDROME
     Dosage: UNK
     Dates: start: 20020701, end: 20031101
  13. YASMIN [Suspect]
     Dosage: UNK
     Dates: start: 20031201, end: 20040701
  14. CARAFATE [Concomitant]
     Dosage: 1 G, QID
     Dates: start: 20111006, end: 20111103
  15. FLUTICASONE PROPIONATE [Concomitant]

REACTIONS (7)
  - GALLBLADDER DISORDER [None]
  - EMOTIONAL DISTRESS [None]
  - PAIN [None]
  - BILIARY DYSKINESIA [None]
  - INJURY [None]
  - FEAR [None]
  - ANXIETY [None]
